FAERS Safety Report 4782486-6 (Version None)
Quarter: 2005Q3

REPORT INFORMATION
  Report Type: 
  Country: None (occurrence: None)
  Receive Date: 20050929
  Receipt Date: 20041220
  Transmission Date: 20060218
  Serious: No
  Sender: FDA-Public Use
  Company Number: 393091

PATIENT
  Age: 69 Year
  Sex: Male

DRUGS (12)
  1. COREG [Suspect]
     Indication: DRUG USE FOR UNKNOWN INDICATION
     Dosage: 3.125MG TWICE PER DAY
     Route: 048
  2. PLAVIX [Concomitant]
  3. ZOCOR [Concomitant]
  4. NORVASC [Concomitant]
  5. GLUCOTROL [Concomitant]
  6. LASAIN [Concomitant]
  7. ASPIRIN [Concomitant]
  8. SINGULAIR [Concomitant]
  9. NEBULIZER [Concomitant]
  10. NEURONTIN [Concomitant]
  11. TRAMADOL [Concomitant]
  12. AVANDIA [Concomitant]

REACTIONS (2)
  - DIZZINESS [None]
  - FATIGUE [None]
